FAERS Safety Report 18132618 (Version 1)
Quarter: 2020Q3

REPORT INFORMATION
  Report Type: Spontaneous
  Country: NL (occurrence: NL)
  Receive Date: 20200811
  Receipt Date: 20200811
  Transmission Date: 20201103
  Serious: Yes (Other)
  Sender: FDA-Public Use
  Company Number: NL-TEVA-2020-NL-1811813

PATIENT
  Age: 71 Year
  Sex: Male
  Weight: 79 kg

DRUGS (4)
  1. LISINOPRIL TABLET  5MG / LISINOPRIL ACCORD TABLET  5MG [Concomitant]
     Dosage: 5 MILLIGRAM DAILY; THERAPY END DATE :ASKU
     Dates: start: 201108
  2. CARBASALAATCALCIUM POEDER 100MG / BRAND NAME NOT SPECIFIED [Concomitant]
     Dosage: 100 MILLIGRAM DAILY; THERAPY END DATE:ASKU
     Dates: start: 2011
  3. METOPROLOL TABLET MGA  25MG (SUCCINAAT) / BRAND NAME NOT SPECIFIED [Concomitant]
     Dosage: 12.5 MG,1 TIME PER DAY 0.5 PIECE (S),THERAPY END DATE:ASKU
     Dates: start: 201108
  4. SIMVASTATINE TABLET FO 20MG / BRAND NAME NOT SPECIFIED [Suspect]
     Active Substance: SIMVASTATIN
     Indication: PROPHYLAXIS
     Dosage: 20 MILLIGRAM DAILY; EXTRA INFO: START 40 MG DUE TO COMPLAINTS SINCE THE BEGINNING OF 2014 20 MG
     Dates: start: 2012

REACTIONS (2)
  - Muscle rupture [Recovered/Resolved]
  - Myalgia [Not Recovered/Not Resolved]

NARRATIVE: CASE EVENT DATE: 2012
